FAERS Safety Report 14066109 (Version 2)
Quarter: 2017Q4

REPORT INFORMATION
  Report Type: Report from Study
  Country: FR (occurrence: FR)
  Receive Date: 20171009
  Receipt Date: 20171011
  Transmission Date: 20180321
  Serious: Yes (Hospitalization)
  Sender: FDA-Public Use
  Company Number: FR-JNJFOC-20170408211

PATIENT
  Age: 85 Year
  Sex: Female
  Weight: 54 kg

DRUGS (1)
  1. IBRUTINIB [Suspect]
     Active Substance: IBRUTINIB
     Indication: CHRONIC LYMPHOCYTIC LEUKAEMIA
     Dosage: 480 MG
     Route: 048
     Dates: start: 20160301

REACTIONS (2)
  - Bronchopulmonary aspergillosis [Recovered/Resolved with Sequelae]
  - Atelectasis [Recovered/Resolved with Sequelae]

NARRATIVE: CASE EVENT DATE: 20161230
